FAERS Safety Report 8334571-X (Version None)
Quarter: 2012Q2

REPORT INFORMATION
  Report Type: 
  Country: None (occurrence: None)
  Receive Date: 20120503
  Receipt Date: 20120424
  Transmission Date: 20120825
  Serious: Yes (Other)
  Sender: FDA-Public Use
  Company Number: DE-JNJFOC-20120309367

PATIENT
  Sex: Female

DRUGS (4)
  1. FUROSEMIDE [Concomitant]
  2. RAMIPRIL [Concomitant]
  3. XARELTO [Suspect]
     Indication: ATRIAL FIBRILLATION
     Route: 048
     Dates: start: 20120127, end: 20120227
  4. BISOPROLOL FUMARATE [Concomitant]

REACTIONS (4)
  - ANAL HAEMORRHAGE [None]
  - INTERNATIONAL NORMALISED RATIO INCREASED [None]
  - LIVER FUNCTION TEST ABNORMAL [None]
  - EPISTAXIS [None]
